FAERS Safety Report 17052964 (Version 1)
Quarter: 2019Q4

REPORT INFORMATION
  Report Type: Spontaneous
  Country: US (occurrence: US)
  Receive Date: 20191120
  Receipt Date: 20191120
  Transmission Date: 20200122
  Serious: Yes (Other)
  Sender: FDA-Public Use
  Company Number: US-JNJFOC-20191116352

PATIENT
  Sex: Male
  Weight: 118.04 kg

DRUGS (15)
  1. XARELTO [Suspect]
     Active Substance: RIVAROXABAN
     Indication: THROMBOSIS PROPHYLAXIS
     Dosage: PRESCRIPTION NUMBER 100011308340
     Route: 048
     Dates: start: 2017
  2. CLONIDINE. [Concomitant]
     Active Substance: CLONIDINE
  3. ALPRAZOLAM. [Concomitant]
     Active Substance: ALPRAZOLAM
  4. METFORMIN ER [Concomitant]
     Active Substance: METFORMIN HYDROCHLORIDE
  5. AMLODIPINE [Concomitant]
     Active Substance: AMLODIPINE BESYLATE
  6. XANAX [Concomitant]
     Active Substance: ALPRAZOLAM
  7. LOSARTAN. [Concomitant]
     Active Substance: LOSARTAN
  8. FENOFIBRATE. [Concomitant]
     Active Substance: FENOFIBRATE
  9. FUROSIMIDE [Concomitant]
     Active Substance: FUROSEMIDE
  10. XARELTO [Suspect]
     Active Substance: RIVAROXABAN
     Indication: CEREBROVASCULAR ACCIDENT PROPHYLAXIS
  11. XARELTO [Suspect]
     Active Substance: RIVAROXABAN
     Indication: ATRIAL FIBRILLATION
  12. METOPROLOL. [Concomitant]
     Active Substance: METOPROLOL
  13. HYDROCODEINE [Concomitant]
     Active Substance: DIHYDROCODEINE PHOSPHATE
  14. POTASSIUM CHLORIDE. [Concomitant]
     Active Substance: POTASSIUM CHLORIDE
  15. RANITIDINE. [Concomitant]
     Active Substance: RANITIDINE

REACTIONS (3)
  - Atrial fibrillation [Unknown]
  - Product dose omission [Unknown]
  - Anxiety [Unknown]
